FAERS Safety Report 6621669-7 (Version None)
Quarter: 2010Q1

REPORT INFORMATION
  Report Type: 
  Country: None (occurrence: None)
  Receive Date: 20100309
  Receipt Date: 20100225
  Transmission Date: 20100710
  Serious: Yes (Death, Life-Threatening, Hospitalization)
  Sender: FDA-Public Use
  Company Number: FR-WYE-H13872410

PATIENT
  Sex: Female

DRUGS (6)
  1. EUPANTOL [Suspect]
     Dosage: UNKNOWN
     Route: 048
  2. XANAX [Suspect]
     Dosage: 0.25 MG, FREQUENCY UNKNOWN
     Route: 048
  3. LAMICTAL CD [Suspect]
     Dosage: 100 MG, FREQUENCY UNKNOWN
     Route: 048
  4. BACTRIM DS [Suspect]
     Indication: PROPHYLAXIS
     Dosage: 3 DOSE FORMS, FREQUENCY UNKNOWN
     Route: 048
  5. TEMODAL [Suspect]
     Dosage: 250 MG, FREQUENCY UNKNOWN
     Route: 048
     Dates: start: 20090105, end: 20090204
  6. CORTANCYL [Suspect]
     Dosage: 40 MG, FREQUENCY UNKNOWN
     Route: 048

REACTIONS (2)
  - BONE MARROW FAILURE [None]
  - HAEMORRHAGE [None]
